FAERS Safety Report 23313731 (Version 1)
Quarter: 2023Q4

REPORT INFORMATION
  Report Type: Spontaneous
  Country: GB (occurrence: GB)
  Receive Date: 20231219
  Receipt Date: 20231219
  Transmission Date: 20240110
  Serious: Yes (Hospitalization, Other)
  Sender: FDA-Public Use
  Company Number: GB-HIKMA PHARMACEUTICALS-GB-H14001-23-66986

PATIENT
  Sex: Female
  Weight: 63.9 kg

DRUGS (6)
  1. CARBOPLATIN [Suspect]
     Active Substance: CARBOPLATIN
     Dosage: 400 MILLIGRAM
     Route: 042
     Dates: start: 20230530, end: 20230530
  2. CARBOPLATIN [Suspect]
     Active Substance: CARBOPLATIN
     Indication: Anal cancer
     Dosage: 500 MILLIGRAM
     Route: 042
     Dates: start: 20230519, end: 20230519
  3. RETIFANLIMAB [Suspect]
     Active Substance: RETIFANLIMAB
     Indication: Anal cancer
     Dosage: 500 MILLIGRAM
     Route: 042
     Dates: start: 20230519
  4. PACLITAXEL [Suspect]
     Active Substance: PACLITAXEL
     Dosage: 70 MILLIGRAM/SQ. METER
     Route: 042
     Dates: start: 20230630, end: 20230630
  5. PACLITAXEL [Suspect]
     Active Substance: PACLITAXEL
     Dosage: 70 MILLIGRAM/SQ. METER
     Route: 042
     Dates: start: 20230804, end: 20230804
  6. PACLITAXEL [Suspect]
     Active Substance: PACLITAXEL
     Indication: Anal cancer
     Dosage: 80 MILLIGRAM/SQ. METER
     Route: 042
     Dates: start: 20230519, end: 20230519

REACTIONS (5)
  - Anal incontinence [Unknown]
  - Eyelid oedema [Unknown]
  - Erythema of eyelid [Unknown]
  - Diarrhoea [Recovered/Resolved]
  - Rectal haemorrhage [Unknown]

NARRATIVE: CASE EVENT DATE: 20231021
